FAERS Safety Report 8771440 (Version 1)
Quarter: 2012Q4

REPORT INFORMATION
  Report Type: 
  Country: US (occurrence: US)
  Receive Date: 20120905
  Receipt Date: 20120905
  Transmission Date: 20130627
  Serious: No
  Sender: FDA-Public Use
  Company Number: US-009507513-1208USA012522

PATIENT

DRUGS (3)
  1. DULERA [Suspect]
     Dosage: 200 Microgram/5 mcg, bid
     Route: 055
     Dates: start: 201208
  2. SPIRIVA [Concomitant]
  3. SINGULAIR [Concomitant]

REACTIONS (2)
  - Dry mouth [Not Recovered/Not Resolved]
  - Throat irritation [Not Recovered/Not Resolved]
